FAERS Safety Report 6878017-7 (Version None)
Quarter: 2010Q3

REPORT INFORMATION
  Report Type: 
  Country: None (occurrence: None)
  Receive Date: 20100727
  Receipt Date: 20070910
  Transmission Date: 20110219
  Serious: Yes (Hospitalization, Other)
  Sender: FDA-Public Use
  Company Number: US-PFIZER INC-2006102289

PATIENT
  Sex: Female
  Weight: 97.1 kg

DRUGS (5)
  1. CELEBREX [Suspect]
     Indication: PAIN
     Dates: start: 19990521
  2. VIOXX [Suspect]
     Indication: OSTEOARTHRITIS
     Dosage: FREQUENCY: 1-2X
     Dates: start: 20000224
  3. VICODIN [Concomitant]
     Dates: start: 19980501, end: 20050225
  4. VICODIN [Concomitant]
     Dates: start: 20030915, end: 20051003
  5. HYDROCHLOROTHIAZIDE [Concomitant]
     Dates: start: 20010817, end: 20051003

REACTIONS (1)
  - MYOCARDIAL INFARCTION [None]
